FAERS Safety Report 14280719 (Version 8)
Quarter: 2018Q4

REPORT INFORMATION
  Report Type: Report from Study
  Country: FR (occurrence: FR)
  Receive Date: 20171213
  Receipt Date: 20181114
  Transmission Date: 20190204
  Serious: Yes (Hospitalization, Other)
  Sender: FDA-Public Use
  Company Number: FR-TAKEDA-2017MPI011206

PATIENT
  Age: 57 Year
  Sex: Male
  Weight: 56 kg

DRUGS (51)
  1. TOPALGIC                           /00599202/ [Concomitant]
     Active Substance: TRAMADOL HYDROCHLORIDE
     Indication: PAIN
     Dosage: 50 MG, UNK
     Route: 065
  2. TAVANIC [Concomitant]
     Active Substance: LEVOFLOXACIN
     Dosage: 250 MG, UNK
     Route: 065
  3. ZELITREX [Concomitant]
     Active Substance: VALACYCLOVIR HYDROCHLORIDE
     Dosage: 500 MG, UNK
     Route: 065
     Dates: start: 20170101
  4. LOVENOX [Concomitant]
     Active Substance: ENOXAPARIN SODIUM
     Dosage: UNK UNK, QD
     Route: 065
  5. BICARBONATE (SODIUM BICARBONATE) [Concomitant]
     Active Substance: SODIUM BICARBONATE
     Dosage: 3 MG, QD
     Route: 065
  6. CARFILZOMIB [Suspect]
     Active Substance: CARFILZOMIB
     Indication: PLASMA CELL MYELOMA
     Dosage: 56 MG/M2, UNK
     Route: 065
     Dates: start: 20160907
  7. AMOXICILLIN. [Concomitant]
     Active Substance: AMOXICILLIN
     Dosage: 500 MG, QD
     Route: 065
  8. ASPIRIN                            /00002701/ [Concomitant]
     Active Substance: ASPIRIN
     Dosage: 2 G, BID
     Route: 065
  9. VALACICLOVIR [Concomitant]
     Active Substance: VALACYCLOVIR HYDROCHLORIDE
     Dosage: 500 MG, UNK
     Route: 065
     Dates: start: 2017
  10. VALACICLOVIR [Concomitant]
     Active Substance: VALACYCLOVIR HYDROCHLORIDE
     Dosage: UNK
     Route: 065
  11. AMLOR [Concomitant]
     Active Substance: AMLODIPINE BESYLATE
     Dosage: 5 MG, UNK
     Route: 065
  12. CARFILZOMIB [Suspect]
     Active Substance: CARFILZOMIB
     Dosage: 27 MG/M2, UNK
     Route: 065
     Dates: start: 2017
  13. AMLODIPINE [Concomitant]
     Active Substance: AMLODIPINE BESYLATE
     Dosage: 5 MG, QD
     Route: 065
  14. CEFTRIAXONE. [Concomitant]
     Active Substance: CEFTRIAXONE
     Dosage: 2 G, QD
     Route: 042
     Dates: start: 20170822, end: 20170822
  15. HYDROCORTISONE. [Concomitant]
     Active Substance: HYDROCORTISONE
     Dosage: 20 MG, QD
     Route: 042
  16. SODIUM HYDROGEN CARBONATE [Concomitant]
     Active Substance: SODIUM BICARBONATE
     Dosage: 3 G, QD
     Route: 065
  17. LANSOPRAZOLE. [Concomitant]
     Active Substance: LANSOPRAZOLE
     Dosage: 15 MG, UNK
     Route: 065
  18. BICARBONATE (SODIUM BICARBONATE) [Concomitant]
     Active Substance: SODIUM BICARBONATE
     Dosage: 3 MG, TID
     Route: 065
  19. ENDOXAN                            /00021101/ [Suspect]
     Active Substance: CYCLOPHOSPHAMIDE
     Dosage: 250 MG, UNK
     Route: 065
  20. CARFILZOMIB [Suspect]
     Active Substance: CARFILZOMIB
     Dosage: 112 MG/M2, UNK
     Route: 065
     Dates: start: 20170703
  21. ASPIRIN                            /00002701/ [Concomitant]
     Active Substance: ASPIRIN
     Indication: PERICARDITIS
     Dosage: 3 G, QD
     Route: 065
     Dates: start: 20170101, end: 20170120
  22. ASPIRIN                            /00002701/ [Concomitant]
     Active Substance: ASPIRIN
     Dosage: 1 G, QD
     Route: 065
     Dates: start: 2017, end: 2017
  23. BICARBONATE (SODIUM BICARBONATE) [Concomitant]
     Active Substance: SODIUM BICARBONATE
     Dosage: UNK UNK, TID
     Route: 065
  24. CODEINE PHOSPHATE W/PARACETAMOL [Concomitant]
     Active Substance: ACETAMINOPHEN\CODEINE PHOSPHATE
     Dosage: 2.5 MG, QD
     Route: 065
  25. ENDOXAN                            /00021101/ [Suspect]
     Active Substance: CYCLOPHOSPHAMIDE
     Indication: PLASMA CELL MYELOMA
     Dosage: UNK
     Route: 065
     Dates: start: 20170701
  26. HYDROCORTISONE. [Concomitant]
     Active Substance: HYDROCORTISONE
     Dosage: 10 MG, UNK
     Route: 042
  27. HYDROCORTISONE. [Concomitant]
     Active Substance: HYDROCORTISONE
     Dosage: 25 MG, Q6HR
     Route: 042
     Dates: start: 20170701
  28. HYDROCORTISONE. [Concomitant]
     Active Substance: HYDROCORTISONE
     Dosage: UNK, BID
     Route: 042
     Dates: start: 20170101
  29. LANSOPRAZOLE. [Concomitant]
     Active Substance: LANSOPRAZOLE
     Dosage: 15 MG, QD
     Route: 065
  30. IXAZOMIB [Suspect]
     Active Substance: IXAZOMIB
     Dosage: UNK
     Route: 065
     Dates: start: 20170701
  31. PANOBINOSTAT [Suspect]
     Active Substance: PANOBINOSTAT
     Indication: PLASMA CELL MYELOMA
     Dosage: UNK
     Route: 065
     Dates: start: 20170210
  32. TAVANIC [Concomitant]
     Active Substance: LEVOFLOXACIN
     Indication: ANTIBIOTIC PROPHYLAXIS
     Dosage: 1000 MG, QD
     Route: 065
     Dates: start: 20170823
  33. CALCIDIA [Concomitant]
     Active Substance: CALCIUM CARBONATE
     Dosage: UNK UNK, QD
     Route: 065
  34. ASPIRIN                            /00002701/ [Concomitant]
     Active Substance: ASPIRIN
     Dosage: 1 G, UNK
     Route: 065
     Dates: start: 20170101
  35. SODIUM HYDROGEN CARBONATE [Concomitant]
     Active Substance: SODIUM BICARBONATE
     Dosage: 4 G, QD
     Route: 065
  36. DOLIPRANE [Concomitant]
     Active Substance: ACETAMINOPHEN
     Dosage: 3 G, QD
     Route: 065
  37. BORTEZOMIB. [Suspect]
     Active Substance: BORTEZOMIB
     Indication: PLASMA CELL MYELOMA
     Dosage: UNK
     Route: 065
     Dates: start: 20170210
  38. IXAZOMIB [Suspect]
     Active Substance: IXAZOMIB
     Indication: PLASMA CELL MYELOMA
     Dosage: 3 MG, UNK
     Route: 065
     Dates: start: 20170901
  39. DEXAMETHASONE. [Suspect]
     Active Substance: DEXAMETHASONE
     Indication: PLASMA CELL MYELOMA
     Dosage: UNK
     Route: 065
     Dates: start: 20170210
  40. LANTUS [Concomitant]
     Active Substance: INSULIN GLARGINE
     Dosage: 40 IU, QD
     Route: 058
  41. BINOCRIT [Concomitant]
     Active Substance: ERYTHROPOIETIN
     Dosage: UNK UNK, 1/WEEK
     Route: 065
  42. BINOCRIT [Concomitant]
     Active Substance: ERYTHROPOIETIN
     Dosage: UNK
     Route: 065
  43. FUROSEMIDE. [Concomitant]
     Active Substance: FUROSEMIDE
     Dosage: UNK
     Route: 065
  44. ZELITREX [Concomitant]
     Active Substance: VALACYCLOVIR HYDROCHLORIDE
     Dosage: UNK
     Route: 065
  45. AMLOR [Concomitant]
     Active Substance: AMLODIPINE BESYLATE
     Dosage: 10 MG, UNK
     Route: 065
     Dates: start: 20170906
  46. TRIATEC                            /00116401/ [Concomitant]
     Active Substance: ACETAMINOPHEN\CODEINE PHOSPHATE
     Dosage: 2.5 MG, QD
     Route: 065
  47. APROVEL [Concomitant]
     Active Substance: IRBESARTAN
     Dosage: 75 MG, UNK
     Route: 065
  48. BICARBONATE (SODIUM BICARBONATE) [Concomitant]
     Active Substance: SODIUM BICARBONATE
     Dosage: 4 G, QD
     Route: 065
  49. CARFILZOMIB [Suspect]
     Active Substance: CARFILZOMIB
     Dosage: 45 MG/M2, UNK
     Route: 065
     Dates: start: 20170101
  50. HYDROCORTISONE. [Concomitant]
     Active Substance: HYDROCORTISONE
     Dosage: UNK
     Route: 042
  51. APIDRA [Concomitant]
     Active Substance: INSULIN GLULISINE
     Dosage: 90 IU, QD
     Route: 058

REACTIONS (12)
  - Oedema peripheral [Not Recovered/Not Resolved]
  - Pleural effusion [Recovering/Resolving]
  - Diarrhoea [Recovering/Resolving]
  - Respiratory failure [Unknown]
  - Septic shock [Unknown]
  - Acute kidney injury [Unknown]
  - Klebsiella infection [Recovering/Resolving]
  - Spinal pain [Unknown]
  - Morganella infection [Recovering/Resolving]
  - Pain in extremity [Unknown]
  - Arthralgia [Unknown]
  - Escherichia infection [Unknown]

NARRATIVE: CASE EVENT DATE: 20170101
